FAERS Safety Report 5018989-9 (Version None)
Quarter: 2006Q2

REPORT INFORMATION
  Report Type: 
  Country: None (occurrence: None)
  Receive Date: 20060606
  Receipt Date: 20060602
  Transmission Date: 20061013
  Serious: Yes (Other)
  Sender: FDA-Public Use
  Company Number: US-GLAXOSMITHKLINE-A0607774A

PATIENT
  Age: 36 Year
  Sex: Male

DRUGS (7)
  1. FLOVENT [Suspect]
     Indication: GASTROENTERITIS EOSINOPHILIC
     Dosage: 4PUFF TWICE PER DAY
     Route: 048
  2. SINGULAIR [Concomitant]
     Route: 048
  3. DIOVAN HCT [Concomitant]
  4. BELLADONNA + PHENOBARBITAL [Concomitant]
  5. ROZEREM [Concomitant]
  6. DIAZEPAM [Concomitant]
  7. PRILOSEC [Concomitant]

REACTIONS (6)
  - DEJA VU [None]
  - DEPRESSED LEVEL OF CONSCIOUSNESS [None]
  - DISEASE RECURRENCE [None]
  - DRUG INEFFECTIVE [None]
  - FLUSHING [None]
  - GASTRITIS [None]
